FAERS Safety Report 5247374-X (Version None)
Quarter: 2007Q1

REPORT INFORMATION
  Report Type: 
  Country: None (occurrence: None)
  Receive Date: 20070227
  Receipt Date: 20070220
  Transmission Date: 20070707
  Serious: Yes (Death, Other)
  Sender: FDA-Public Use
  Company Number: JP-JNJFOC-20070204168

PATIENT
  Age: 77 Year
  Sex: Female

DRUGS (14)
  1. ITRACONAZOLE [Suspect]
     Indication: CHRONIC OBSTRUCTIVE PULMONARY DISEASE
     Route: 041
     Dates: start: 20070215, end: 20070216
  2. DIGOSIN [Interacting]
     Indication: DRUG USE FOR UNKNOWN INDICATION
     Route: 065
  3. ASPIRIN [Concomitant]
     Route: 065
  4. HERBESSER [Concomitant]
     Route: 065
  5. DASEN [Concomitant]
     Route: 065
  6. MAGLAX [Concomitant]
     Route: 065
  7. RONVELIN [Concomitant]
     Route: 065
  8. PENTCILLIN [Concomitant]
     Route: 065
  9. ACTIT [Concomitant]
     Route: 065
  10. NEOPHYLLIN [Concomitant]
     Route: 065
  11. ZANTAC [Concomitant]
     Route: 065
  12. PRIMPERAN [Concomitant]
     Route: 065
  13. HARNAL [Concomitant]
     Route: 065
  14. MYSLEE [Concomitant]
     Route: 065

REACTIONS (5)
  - ABNORMAL BEHAVIOUR [None]
  - CONVULSION [None]
  - DRUG INTERACTION [None]
  - SPEECH DISORDER [None]
  - STUPOR [None]
